FAERS Safety Report 8045671-6 (Version None)
Quarter: 2012Q1

REPORT INFORMATION
  Report Type: 
  Country: None (occurrence: None)
  Receive Date: 20120113
  Receipt Date: 20120111
  Transmission Date: 20120608
  Serious: Yes (Death)
  Sender: FDA-Public Use
  Company Number: CA-CELGENEUS-028-21880-12011030

PATIENT
  Sex: Female

DRUGS (7)
  1. NEXIUM [Concomitant]
     Route: 065
  2. IMMUNE GLOBULIN NOS [Concomitant]
     Route: 065
  3. REVLIMID [Suspect]
     Indication: MULTIPLE MYELOMA
     Dosage: 10 MILLIGRAM
     Route: 048
     Dates: start: 20110701, end: 20111101
  4. ASPIRIN [Concomitant]
     Route: 065
  5. AREDIA [Concomitant]
     Route: 065
  6. SYNTHROID [Concomitant]
     Route: 065
  7. DECADRON [Concomitant]
     Route: 065

REACTIONS (1)
  - DEATH [None]
